FAERS Safety Report 16165514 (Version 1)
Quarter: 2019Q2

REPORT INFORMATION
  Report Type: Spontaneous
  Country: US (occurrence: US)
  Receive Date: 20190405
  Receipt Date: 20190405
  Transmission Date: 20190711
  Serious: No
  Sender: FDA-Public Use
  Company Number: US-IBSA PHARMA-TIR-2016-1213

PATIENT
  Sex: Female

DRUGS (4)
  1. TIROSINT [Suspect]
     Active Substance: LEVOTHYROXINE SODIUM
     Dosage: ONCE DAILY
     Route: 048
     Dates: start: 201612
  2. TIROSINT [Suspect]
     Active Substance: LEVOTHYROXINE SODIUM
     Indication: AUTOIMMUNE THYROIDITIS
     Dosage: ONCE DAILY
     Route: 048
     Dates: start: 2014, end: 201610
  3. TIROSINT [Suspect]
     Active Substance: LEVOTHYROXINE SODIUM
     Dosage: 25MCG DAILY
     Route: 048
     Dates: start: 2018
  4. TIROSINT [Suspect]
     Active Substance: LEVOTHYROXINE SODIUM
     Dosage: ONCE DAILY
     Route: 048
     Dates: start: 201610, end: 20161031

REACTIONS (14)
  - Drug ineffective [Unknown]
  - Alopecia [Not Recovered/Not Resolved]
  - Fatigue [Unknown]
  - Asthenia [Not Recovered/Not Resolved]
  - Pallor [Unknown]
  - Weight increased [Unknown]
  - Fatigue [Not Recovered/Not Resolved]
  - Malaise [Not Recovered/Not Resolved]
  - Product quality issue [Unknown]
  - Swelling face [Not Recovered/Not Resolved]
  - Hair texture abnormal [Not Recovered/Not Resolved]
  - Malaise [Unknown]
  - Therapeutic product effect decreased [Unknown]
  - Pallor [Unknown]

NARRATIVE: CASE EVENT DATE: 2016
